FAERS Safety Report 5197458-X (Version None)
Quarter: 2006Q4

REPORT INFORMATION
  Report Type: 
  Country: None (occurrence: None)
  Receive Date: 20060927
  Receipt Date: 20060612
  Transmission Date: 20070319
  Serious: No
  Sender: FDA-Public Use
  Company Number: US-CVT-061295

PATIENT
  Age: 66 Year
  Sex: Female
  Weight: 92.0802 kg

DRUGS (6)
  1. RANEXA [Suspect]
     Indication: ANGINA PECTORIS
     Dosage: 1000 MG, BID, ORAL
     Route: 048
     Dates: start: 20060101
  2. INSULIN /00030501/ (INSULIN) [Concomitant]
  3. PLAVIX [Concomitant]
  4. DEMADEX [Concomitant]
  5. TOPROL-XL [Concomitant]
  6. COZAAR [Concomitant]

REACTIONS (5)
  - ASTHENIA [None]
  - BLOOD POTASSIUM DECREASED [None]
  - DYSPNOEA [None]
  - EJECTION FRACTION DECREASED [None]
  - SWELLING [None]
